FAERS Safety Report 6592018-8 (Version None)
Quarter: 2010Q1

REPORT INFORMATION
  Report Type: 
  Country: None (occurrence: None)
  Receive Date: 20100221
  Receipt Date: 20090826
  Transmission Date: 20100710
  Serious: No
  Sender: FDA-Public Use
  Company Number: US-ALLERGAN-0911820US

PATIENT
  Sex: Female

DRUGS (3)
  1. BOTOX COSMETIC [Suspect]
     Indication: SKIN WRINKLING
     Dosage: 36 UNITS, SINGLE
     Route: 030
     Dates: start: 20090818, end: 20090818
  2. BOTOX COSMETIC [Suspect]
     Dosage: 36 UNITS, SINGLE
     Route: 030
     Dates: start: 20090101, end: 20090101
  3. BOTOX COSMETIC [Suspect]
     Dosage: UNK
     Route: 030
     Dates: start: 20080801, end: 20080801

REACTIONS (1)
  - DYSPNOEA [None]
